FAERS Safety Report 12778977 (Version 1)
Quarter: 2016Q3

REPORT INFORMATION
  Report Type: Spontaneous
  Country: US (occurrence: US)
  Receive Date: 20160926
  Receipt Date: 20160926
  Transmission Date: 20161109
  Serious: No
  Sender: FDA-Public Use
  Company Number: US-JAZZ-2016-US-011428

PATIENT
  Age: 42 Year
  Sex: Female

DRUGS (22)
  1. GABAPENTIN. [Concomitant]
     Active Substance: GABAPENTIN
  2. KRILL OIL [Concomitant]
     Active Substance: DIETARY SUPPLEMENT
  3. MYCOPHENOLATE [Concomitant]
     Active Substance: MYCOPHENOLIC ACID
  4. VITAMIN C [Concomitant]
     Active Substance: ASCORBIC ACID
  5. ATORVASTATIN [Concomitant]
     Active Substance: ATORVASTATIN
  6. GLUCOSAMINE COMPLEX [Concomitant]
     Active Substance: GLUCOSAMINE\GLUCOSAMINE SULFATE
  7. PROBIOTIC [Concomitant]
     Active Substance: PROBIOTICS NOS
  8. OMEPRAZOLE. [Concomitant]
     Active Substance: OMEPRAZOLE
  9. XYREM [Suspect]
     Active Substance: SODIUM OXYBATE
     Indication: INSOMNIA
     Dosage: 2.25 G, BID
     Route: 048
     Dates: start: 201606, end: 201606
  10. XYREM [Suspect]
     Active Substance: SODIUM OXYBATE
     Dosage: 2.25 G, QD
     Route: 048
     Dates: start: 201606
  11. MAGNESIUM OXIDE. [Concomitant]
     Active Substance: MAGNESIUM OXIDE
  12. VITAMIN D [Concomitant]
     Active Substance: CHOLECALCIFEROL
  13. LYRICA [Concomitant]
     Active Substance: PREGABALIN
  14. CINNAMON. [Concomitant]
     Active Substance: CINNAMON
  15. VALIUM [Concomitant]
     Active Substance: DIAZEPAM
  16. PROLIA [Concomitant]
     Active Substance: DENOSUMAB
  17. SODIUM BICARBONATE. [Concomitant]
     Active Substance: SODIUM BICARBONATE
  18. ACYCLOVIR. [Concomitant]
     Active Substance: ACYCLOVIR
  19. ASPIRIN. [Concomitant]
     Active Substance: ASPIRIN
  20. PREDNISONE. [Concomitant]
     Active Substance: PREDNISONE
  21. CITALOPRAM [Concomitant]
     Active Substance: CITALOPRAM HYDROBROMIDE
  22. DIFLUCAN [Concomitant]
     Active Substance: FLUCONAZOLE

REACTIONS (1)
  - Diarrhoea [Not Recovered/Not Resolved]

NARRATIVE: CASE EVENT DATE: 201606
